FAERS Safety Report 7232094-2 (Version None)
Quarter: 2011Q1

REPORT INFORMATION
  Report Type: 
  Country: None (occurrence: None)
  Receive Date: 20110119
  Receipt Date: 20110111
  Transmission Date: 20110831
  Serious: Yes (Death, Other)
  Sender: FDA-Public Use
  Company Number: BR-AMGEN-BRASP2011002620

PATIENT

DRUGS (3)
  1. ETANERCEPT [Suspect]
     Indication: RHEUMATOID ARTHRITIS
     Route: 058
  2. PREDNISONE [Concomitant]
     Dosage: 7.5 MG, 1X/DAY
  3. PREDNISONE [Concomitant]
     Dosage: 40 MG/DAY

REACTIONS (3)
  - NOSOCOMIAL INFECTION [None]
  - SEPSIS [None]
  - PATELLA FRACTURE [None]
